FAERS Safety Report 16761025 (Version 1)
Quarter: 2019Q3

REPORT INFORMATION
  Report Type: Report from Study
  Country: GB (occurrence: GB)
  Receive Date: 20190830
  Receipt Date: 20190830
  Transmission Date: 20191005
  Serious: Yes (Other)
  Sender: FDA-Public Use
  Company Number: GB-ROCHE-2389824

PATIENT

DRUGS (1)
  1. ALTEPLASE. [Suspect]
     Active Substance: ALTEPLASE
     Indication: PERIPHERAL ISCHAEMIA
     Route: 040

REACTIONS (6)
  - Retroperitoneal haematoma [Unknown]
  - Haemorrhage [Unknown]
  - Haematemesis [Unknown]
  - Catheter site haemorrhage [Unknown]
  - Peripheral embolism [Unknown]
  - Arterial perforation [Unknown]
